FAERS Safety Report 12204387 (Version 2)
Quarter: 2016Q1

REPORT INFORMATION
  Report Type: Spontaneous
  Country: SA (occurrence: SA)
  Receive Date: 20160323
  Receipt Date: 20160323
  Transmission Date: 20160526
  Serious: Yes (Other)
  Sender: FDA-Public Use
  Company Number: PHHY2016SA037708

PATIENT
  Age: 60 Year
  Sex: Male

DRUGS (3)
  1. ESOMEPRAZOLE [Concomitant]
     Active Substance: ESOMEPRAZOLE
     Indication: PRODUCT USED FOR UNKNOWN INDICATION
     Dosage: UNK DF, UNK
     Route: 065
  2. DICLOFENAC [Suspect]
     Active Substance: DICLOFENAC
     Indication: ARTHRALGIA
     Dosage: 50/100 MG
     Route: 065
  3. SIMVASTATIN. [Concomitant]
     Active Substance: SIMVASTATIN
     Indication: PRODUCT USED FOR UNKNOWN INDICATION
     Dosage: UNK DF, UNK
     Route: 065

REACTIONS (15)
  - Flank pain [Recovered/Resolved]
  - Pupillary disorder [Unknown]
  - Vision blurred [Recovered/Resolved]
  - Tubulointerstitial nephritis [Recovered/Resolved]
  - Erythema [Recovered/Resolved]
  - Eye pain [Recovered/Resolved]
  - Uveitis [Recovered/Resolved]
  - Iridocyclitis [Recovered/Resolved]
  - Cystoid macular oedema [Unknown]
  - Chills [Unknown]
  - Urine output decreased [Recovered/Resolved]
  - Pyrexia [Recovered/Resolved]
  - Retinal exudates [Unknown]
  - Blood creatinine increased [Recovered/Resolved]
  - Vitreous floaters [Recovered/Resolved]
